FAERS Safety Report 20492558 (Version 10)
Quarter: 2022Q4

REPORT INFORMATION
  Report Type: Report from Study
  Country: US (occurrence: US)
  Receive Date: 20220219
  Receipt Date: 20221219
  Transmission Date: 20230113
  Serious: No
  Sender: FDA-Public Use
  Company Number: US-NOVARTISTESTPH-NVSC2022US038463

PATIENT
  Sex: Male

DRUGS (1)
  1. COSENTYX [Suspect]
     Active Substance: SECUKINUMAB
     Indication: Axial spondyloarthritis
     Dosage: UNK
     Route: 058

REACTIONS (5)
  - Condition aggravated [Unknown]
  - Pain in extremity [Unknown]
  - Pruritus [Unknown]
  - Rash erythematous [Unknown]
  - Drug ineffective [Unknown]
